FAERS Safety Report 18245416 (Version 1)
Quarter: 2020Q3

REPORT INFORMATION
  Report Type: Report from Study
  Country: None (occurrence: US)
  Receive Date: 20200908
  Receipt Date: 20200908
  Transmission Date: 20201103
  Serious: Yes (Other)
  Sender: FDA-Public Use
  Company Number: US-ABBVIE-20K-163-3552110-00

PATIENT
  Sex: Female

DRUGS (1)
  1. HUMIRA [Suspect]
     Active Substance: ADALIMUMAB
     Indication: PSORIASIS
     Dosage: CITRATE FREE
     Route: 058
     Dates: end: 2020

REACTIONS (12)
  - Oropharyngeal blistering [Unknown]
  - Ear pain [Unknown]
  - Oropharyngeal pain [Unknown]
  - Nasal congestion [Unknown]
  - Dyspnoea [Unknown]
  - Hyperaesthesia teeth [Unknown]
  - Seasonal allergy [Unknown]
  - Infection [Not Recovered/Not Resolved]
  - Tongue blistering [Unknown]
  - Oral mucosal blistering [Unknown]
  - Sinusitis [Unknown]
  - Arthralgia [Unknown]

NARRATIVE: CASE EVENT DATE: 2020
